FAERS Safety Report 9964008 (Version 1)
Quarter: 2014Q1

REPORT INFORMATION
  Report Type: Spontaneous
  Country: US (occurrence: US)
  Receive Date: 20140305
  Receipt Date: 20140305
  Transmission Date: 20141002
  Serious: Yes (Hospitalization)
  Sender: FDA-Public Use
  Company Number: US-GLAXOSMITHKLINE-A1062539A

PATIENT
  Age: 28 Year
  Sex: Male

DRUGS (15)
  1. ARIXTRA [Suspect]
     Indication: COAGULOPATHY
     Dosage: 1INJ PER DAY
     Route: 058
     Dates: start: 201208
  2. TOPAMAX [Concomitant]
  3. PERCOCET [Concomitant]
  4. FIORICET [Concomitant]
  5. ATROVENT [Concomitant]
  6. TYLENOL [Concomitant]
  7. BENADRYL [Concomitant]
  8. PEPTO BISMOL [Concomitant]
  9. ALBUTEROL SULFATE NEBULIZER [Concomitant]
  10. PHENERGAN [Concomitant]
  11. PRO-AIR [Concomitant]
  12. ASMANEX [Concomitant]
  13. PHENERGAN [Concomitant]
  14. FLUTICASONE [Concomitant]
  15. ANDROGEL [Concomitant]

REACTIONS (1)
  - Asthma [Recovered/Resolved]
